FAERS Safety Report 6849490-5 (Version None)
Quarter: 2010Q3

REPORT INFORMATION
  Report Type: 
  Country: None (occurrence: None)
  Receive Date: 20100716
  Receipt Date: 20071109
  Transmission Date: 20110219
  Serious: No
  Sender: FDA-Public Use
  Company Number: US-PFIZER INC-2007082319

PATIENT
  Sex: Female
  Weight: 73.48 kg

DRUGS (6)
  1. CHANTIX [Suspect]
     Indication: SMOKING CESSATION THERAPY
     Route: 048
     Dates: start: 20070903
  2. SYNTHROID [Concomitant]
     Indication: THYROID DISORDER
  3. ZOCOR [Concomitant]
     Indication: BLOOD CHOLESTEROL INCREASED
  4. PREVACID [Concomitant]
     Indication: GASTROOESOPHAGEAL REFLUX DISEASE
  5. ADVAIR DISKUS 100/50 [Concomitant]
     Indication: ASTHMA
  6. ALBUTEROL [Concomitant]
     Indication: ASTHMA

REACTIONS (4)
  - AGEUSIA [None]
  - HEADACHE [None]
  - NAUSEA [None]
  - NIGHTMARE [None]
